FAERS Safety Report 5947730-8 (Version None)
Quarter: 2008Q4

REPORT INFORMATION
  Report Type: 
  Country: None (occurrence: None)
  Receive Date: 20081110
  Receipt Date: 20081110
  Transmission Date: 20090506
  Serious: Yes (Life-Threatening)
  Sender: FDA-Public Use
  Company Number: None

PATIENT
  Age: 15 Year
  Sex: Female
  Weight: 66.5 kg

DRUGS (1)
  1. MONONESSA 0.25 MG WATSON LABORATORIES [Suspect]
     Indication: CONTRACEPTION
     Dosage: 1 PILL -0.25 MG- DAILY PO
     Route: 048
     Dates: start: 20071101, end: 20081028

REACTIONS (5)
  - HEADACHE [None]
  - INTRACRANIAL VENOUS SINUS THROMBOSIS [None]
  - NAUSEA [None]
  - NECK PAIN [None]
  - VOMITING [None]
